FAERS Safety Report 13564245 (Version 2)
Quarter: 2017Q2

REPORT INFORMATION
  Report Type: Report from Study
  Country: US (occurrence: US)
  Receive Date: 20170519
  Receipt Date: 20170522
  Transmission Date: 20170830
  Serious: Yes (Other)
  Sender: FDA-Public Use
  Company Number: US-ASTRAZENECA-2013SE91570

PATIENT
  Age: 76 Year
  Sex: Male
  Weight: 68.9 kg

DRUGS (31)
  1. GLYBURIDE. [Concomitant]
     Active Substance: GLYBURIDE
     Indication: BLOOD GLUCOSE ABNORMAL
     Route: 048
  2. ALBUTEROL SULFATE. [Concomitant]
     Active Substance: ALBUTEROL SULFATE
     Indication: DYSPNOEA
     Dosage: 1.25MG UNKNOWN
     Route: 055
     Dates: start: 2012
  3. LASIX [Concomitant]
     Active Substance: FUROSEMIDE
     Indication: JOINT SWELLING
     Route: 048
  4. SYMBICORT [Suspect]
     Active Substance: BUDESONIDE\FORMOTEROL FUMARATE DIHYDRATE
     Indication: DYSPNOEA
     Dosage: 160/4.5 UG, 2 PUFFS TWICE DAILY
     Route: 055
     Dates: start: 2012
  5. SYMBICORT [Suspect]
     Active Substance: BUDESONIDE\FORMOTEROL FUMARATE DIHYDRATE
     Indication: CHRONIC OBSTRUCTIVE PULMONARY DISEASE
     Dosage: SOMETIMES TOOK MORE THAN 2 PUFFS TWICE A DAY
     Route: 055
  6. SYMBICORT [Suspect]
     Active Substance: BUDESONIDE\FORMOTEROL FUMARATE DIHYDRATE
     Indication: DYSPNOEA
     Dosage: SOMETIMES TOOK MORE THAN 2 PUFFS TWICE A DAY
     Route: 055
  7. SYMBICORT [Suspect]
     Active Substance: BUDESONIDE\FORMOTEROL FUMARATE DIHYDRATE
     Indication: DYSPNOEA
     Dosage: TAKING AN EXTRA DOSE OF 1 PUFF AT BEDTIME
     Route: 055
  8. ASPIRIN. [Concomitant]
     Active Substance: ASPIRIN
     Indication: ANTICOAGULANT THERAPY
     Route: 048
     Dates: start: 2011
  9. TRIMETHOPRIM. [Concomitant]
     Active Substance: TRIMETHOPRIM
     Route: 048
  10. AMOXICILLIN. [Concomitant]
     Active Substance: AMOXICILLIN
     Indication: NASAL CONGESTION
     Dosage: 500.0MG AS REQUIRED
     Route: 048
  11. SYMBICORT [Suspect]
     Active Substance: BUDESONIDE\FORMOTEROL FUMARATE DIHYDRATE
     Indication: CHRONIC OBSTRUCTIVE PULMONARY DISEASE
     Dosage: 160/4.5 UG, 2 PUFFS TWICE DAILY
     Route: 055
     Dates: start: 2012
  12. BENAZEPRIL [Concomitant]
     Active Substance: BENAZEPRIL HYDROCHLORIDE
     Indication: BLOOD GLUCOSE ABNORMAL
     Route: 048
     Dates: start: 2013
  13. TAMSULOSIN [Concomitant]
     Active Substance: TAMSULOSIN
     Indication: SWELLING
     Route: 048
     Dates: start: 2013
  14. SYMBICORT [Suspect]
     Active Substance: BUDESONIDE\FORMOTEROL FUMARATE DIHYDRATE
     Indication: CHRONIC OBSTRUCTIVE PULMONARY DISEASE
     Dosage: TAKING AN EXTRA DOSE OF 1 PUFF AT BEDTIME
     Route: 055
  15. SYMBICORT [Suspect]
     Active Substance: BUDESONIDE\FORMOTEROL FUMARATE DIHYDRATE
     Indication: DYSPNOEA
     Dosage: TAKING AN EXTRA DOSE OF 1 PUFF AT BEDTIME
     Route: 055
  16. SYMBICORT [Suspect]
     Active Substance: BUDESONIDE\FORMOTEROL FUMARATE DIHYDRATE
     Indication: EMPHYSEMA
     Dosage: TAKING AN EXTRA DOSE OF 1 PUFF AT BEDTIME
     Route: 055
  17. ASPIRIN. [Concomitant]
     Active Substance: ASPIRIN
     Indication: CARDIAC DISORDER
     Route: 048
     Dates: start: 2011
  18. VITAMIN B12 [Concomitant]
     Active Substance: CYANOCOBALAMIN
  19. DULERA [Concomitant]
     Active Substance: FORMOTEROL FUMARATE DIHYDRATE\MOMETASONE FUROATE
  20. ALBUTEROL SULFATE. [Concomitant]
     Active Substance: ALBUTEROL SULFATE
     Indication: CHRONIC OBSTRUCTIVE PULMONARY DISEASE
     Dosage: 1.25MG UNKNOWN
     Route: 055
     Dates: start: 2012
  21. AMOXICILLIN. [Concomitant]
     Active Substance: AMOXICILLIN
     Indication: NASAL CONGESTION
     Dosage: 200.0MG AS REQUIRED
     Route: 048
  22. SYMBICORT [Suspect]
     Active Substance: BUDESONIDE\FORMOTEROL FUMARATE DIHYDRATE
     Indication: EMPHYSEMA
     Dosage: 160/4.5 UG, 2 PUFFS TWICE DAILY
     Route: 055
     Dates: start: 2012
  23. SYMBICORT [Suspect]
     Active Substance: BUDESONIDE\FORMOTEROL FUMARATE DIHYDRATE
     Indication: DYSPNOEA
     Dosage: SOMETIMES TOOK MORE THAN 2 PUFFS TWICE A DAY
     Route: 055
  24. METFORMIN [Concomitant]
     Active Substance: METFORMIN HYDROCHLORIDE
     Indication: BLOOD GLUCOSE ABNORMAL
     Route: 048
     Dates: start: 2012
  25. METFORMIN [Concomitant]
     Active Substance: METFORMIN HYDROCHLORIDE
     Indication: TYPE 2 DIABETES MELLITUS
     Route: 048
     Dates: start: 2012
  26. ASPIRIN. [Concomitant]
     Active Substance: ASPIRIN
     Indication: ANTICOAGULANT THERAPY
     Route: 048
     Dates: start: 2011
  27. LASIX [Concomitant]
     Active Substance: FUROSEMIDE
     Indication: FLUID RETENTION
     Route: 048
  28. SYMBICORT [Suspect]
     Active Substance: BUDESONIDE\FORMOTEROL FUMARATE DIHYDRATE
     Indication: DYSPNOEA
     Dosage: 160/4.5 UG, 2 PUFFS TWICE DAILY
     Route: 055
     Dates: start: 2012
  29. SYMBICORT [Suspect]
     Active Substance: BUDESONIDE\FORMOTEROL FUMARATE DIHYDRATE
     Indication: EMPHYSEMA
     Dosage: SOMETIMES TOOK MORE THAN 2 PUFFS TWICE A DAY
     Route: 055
  30. ASPIRIN. [Concomitant]
     Active Substance: ASPIRIN
     Indication: PROPHYLAXIS
     Route: 048
     Dates: start: 2011
  31. AMOXICILLIN. [Concomitant]
     Active Substance: AMOXICILLIN
     Indication: NASAL CONGESTION
     Dosage: 500.0MG AS REQUIRED
     Route: 048
     Dates: start: 2013

REACTIONS (31)
  - Insomnia [Not Recovered/Not Resolved]
  - Dyspnoea [Unknown]
  - Asthenia [Unknown]
  - Poor peripheral circulation [Unknown]
  - Sinus congestion [Unknown]
  - Back disorder [Not Recovered/Not Resolved]
  - Hypertension [Unknown]
  - Chronic obstructive pulmonary disease [Unknown]
  - Vision blurred [Unknown]
  - Dizziness [Unknown]
  - Malaise [Unknown]
  - Prostatic disorder [Recovering/Resolving]
  - Productive cough [Unknown]
  - Weight fluctuation [Unknown]
  - Paraesthesia [Unknown]
  - Blood glucose increased [Unknown]
  - Muscle spasms [Not Recovered/Not Resolved]
  - Contusion [Unknown]
  - Hypophagia [Unknown]
  - Joint swelling [Not Recovered/Not Resolved]
  - Swelling [Unknown]
  - Cataract [Unknown]
  - Drug dose omission [Unknown]
  - Weight decreased [Not Recovered/Not Resolved]
  - Musculoskeletal discomfort [Not Recovered/Not Resolved]
  - Intentional product use issue [Unknown]
  - Intentional product misuse [Unknown]
  - Drug ineffective [Unknown]
  - Fall [Unknown]
  - Cough [Unknown]
  - Decreased appetite [Not Recovered/Not Resolved]

NARRATIVE: CASE EVENT DATE: 2012
